FAERS Safety Report 8158396-3 (Version None)
Quarter: 2012Q1

REPORT INFORMATION
  Report Type: 
  Country: None (occurrence: None)
  Receive Date: 20120223
  Receipt Date: 20120210
  Transmission Date: 20120608
  Serious: Yes (Disabling, Other)
  Sender: FDA-Public Use
  Company Number: US-JNJFOC-20120206274

PATIENT
  Sex: Male
  Weight: 92.53 kg

DRUGS (3)
  1. ANTIBIOTICS [Concomitant]
     Indication: PRODUCT USED FOR UNKNOWN INDICATION
     Route: 065
  2. PREDNISONE TAB [Concomitant]
     Indication: PRODUCT USED FOR UNKNOWN INDICATION
     Route: 065
  3. REMICADE [Suspect]
     Indication: COLITIS ULCERATIVE
     Route: 042
     Dates: start: 20110101

REACTIONS (8)
  - ONYCHOMADESIS [None]
  - DISABILITY [None]
  - INTESTINAL HAEMORRHAGE [None]
  - CONDITION AGGRAVATED [None]
  - WEIGHT DECREASED [None]
  - MALAISE [None]
  - EXPOSURE TO TOXIC AGENT [None]
  - DRUG INEFFECTIVE [None]
